FAERS Safety Report 19973162 (Version 3)
Quarter: 2021Q4

REPORT INFORMATION
  Report Type: Report from Study
  Country: NL (occurrence: NL)
  Receive Date: 20211019
  Receipt Date: 20211129
  Transmission Date: 20220303
  Serious: Yes (Hospitalization)
  Sender: FDA-Public Use
  Company Number: NL-ABBVIE-21K-114-4121973-00

PATIENT
  Age: 60 Year
  Sex: Male
  Weight: 84 kg

DRUGS (10)
  1. VENETOCLAX [Suspect]
     Active Substance: VENETOCLAX
     Indication: Acute myeloid leukaemia
     Route: 048
     Dates: start: 202104, end: 2021
  2. VENETOCLAX [Suspect]
     Active Substance: VENETOCLAX
     Route: 048
     Dates: start: 20210815, end: 20210816
  3. VENETOCLAX [Suspect]
     Active Substance: VENETOCLAX
     Route: 048
     Dates: start: 2021, end: 2021
  4. VENETOCLAX [Suspect]
     Active Substance: VENETOCLAX
     Dosage: 3-28 DAYS
     Route: 048
     Dates: start: 2021, end: 2021
  5. DECITABINE [Suspect]
     Active Substance: DECITABINE
     Indication: Product used for unknown indication
     Route: 065
     Dates: start: 202103, end: 2021
  6. DECITABINE [Suspect]
     Active Substance: DECITABINE
     Route: 065
     Dates: start: 2021
  7. POSACONAZOLE [Concomitant]
     Active Substance: POSACONAZOLE
     Indication: Product used for unknown indication
     Dosage: MAXIMUM 10 MILLIGRAMS
  8. POSACONAZOLE [Concomitant]
     Active Substance: POSACONAZOLE
     Dosage: MAXIMUM 20 MILLIGRAMS
  9. POSACONAZOLE [Concomitant]
     Active Substance: POSACONAZOLE
     Dosage: MAXIMUM 50 MILLIGRAMS
  10. POSACONAZOLE [Concomitant]
     Active Substance: POSACONAZOLE
     Dosage: MAXIMUM 70 MILLIGRAMS

REACTIONS (2)
  - Allogenic stem cell transplantation [Recovered/Resolved]
  - Off label use [Recovered/Resolved]

NARRATIVE: CASE EVENT DATE: 20210101
